FAERS Safety Report 5476690-1 (Version None)
Quarter: 2007Q3

REPORT INFORMATION
  Report Type: 
  Country: None (occurrence: None)
  Receive Date: 20070917
  Receipt Date: 20070917
  Transmission Date: 20080115
  Serious: No
  Sender: FDA-Public Use
  Company Number: None

PATIENT
  Age: 46 Year
  Sex: Male
  Weight: 95.2554 kg

DRUGS (1)
  1. RADIO ACTIVE IODINE [Suspect]
     Indication: HYPERTHYROIDISM
     Dosage: 1 PO
     Route: 048
     Dates: start: 19951217, end: 19951217

REACTIONS (1)
  - POLYARTERITIS NODOSA [None]
